FAERS Safety Report 5407997-1 (Version None)
Quarter: 2007Q3

REPORT INFORMATION
  Report Type: 
  Country: None (occurrence: None)
  Receive Date: 20070803
  Receipt Date: 20070724
  Transmission Date: 20080115
  Serious: Yes (Disabling, Other)
  Sender: FDA-Public Use
  Company Number: 2007AL003005

PATIENT
  Age: 32 Year
  Sex: Male

DRUGS (2)
  1. FLUOXETINE [Suspect]
     Indication: DEPRESSION
     Dates: start: 20060630, end: 20060706
  2. CLOZAPINE [Concomitant]

REACTIONS (4)
  - DROP ATTACKS [None]
  - DRUG INEFFECTIVE [None]
  - MYOCLONUS [None]
  - SALIVARY HYPERSECRETION [None]
